FAERS Safety Report 6494738-2 (Version None)
Quarter: 2009Q4

REPORT INFORMATION
  Report Type: 
  Country: None (occurrence: None)
  Receive Date: 20091214
  Receipt Date: 20090507
  Transmission Date: 20100525
  Serious: Yes (Other)
  Sender: FDA-Public Use
  Company Number: US-BRISTOL-MYERS SQUIBB COMPANY-14553564

PATIENT
  Age: 42 Year
  Sex: Female

DRUGS (6)
  1. ABILIFY [Suspect]
     Indication: AFFECTIVE DISORDER
     Dosage: 11/2008 DOSE INCREASED TO 30MG
     Route: 048
     Dates: end: 20090310
  2. ABILIFY [Suspect]
     Indication: PSYCHOTIC DISORDER
     Dosage: 11/2008 DOSE INCREASED TO 30MG
     Route: 048
     Dates: end: 20090310
  3. TRAZODONE HCL [Suspect]
     Dates: end: 20090310
  4. WELLBUTRIN [Suspect]
  5. GLIMEPIRIDE [Concomitant]
     Dates: start: 20090101
  6. METFORMIN HCL [Concomitant]
     Dates: start: 20090101

REACTIONS (4)
  - DIABETES MELLITUS [None]
  - DYSKINESIA [None]
  - DYSTONIA [None]
  - MUSCLE TWITCHING [None]
